FAERS Safety Report 15055150 (Version 1)
Quarter: 2018Q2

REPORT INFORMATION
  Report Type: Spontaneous
  Country: HU (occurrence: HU)
  Receive Date: 20180622
  Receipt Date: 20180622
  Transmission Date: 20180711
  Serious: Yes (Other)
  Sender: FDA-Public Use
  Company Number: HU-BAXTER-2018BAX017451

PATIENT
  Age: 14 Year
  Sex: Male

DRUGS (5)
  1. ENDOXAN 1G POR OLDATOS INJEKCI?HOZ [Suspect]
     Active Substance: CYCLOPHOSPHAMIDE
     Indication: NEUROMYELITIS OPTICA SPECTRUM DISORDER
     Route: 065
  2. CICLOSPORIN [Suspect]
     Active Substance: CYCLOSPORINE
     Indication: NEUROMYELITIS OPTICA SPECTRUM DISORDER
     Route: 065
  3. RITUXIMAB. [Suspect]
     Active Substance: RITUXIMAB
     Indication: NEUROMYELITIS OPTICA SPECTRUM DISORDER
     Route: 065
  4. MYCOPHENOLATE MOFETIL. [Suspect]
     Active Substance: MYCOPHENOLATE MOFETIL
     Indication: NEUROMYELITIS OPTICA SPECTRUM DISORDER
     Route: 065
  5. TOCILIZUMAB. [Suspect]
     Active Substance: TOCILIZUMAB
     Indication: NEUROMYELITIS OPTICA SPECTRUM DISORDER
     Route: 065

REACTIONS (7)
  - Paraplegia [Recovering/Resolving]
  - Muscle twitching [Recovering/Resolving]
  - Incontinence [Recovering/Resolving]
  - Neurological decompensation [Recovering/Resolving]
  - Product use in unapproved indication [Unknown]
  - Sensory loss [Recovering/Resolving]
  - Muscular weakness [Recovering/Resolving]
